FAERS Safety Report 6591146-0 (Version None)
Quarter: 2010Q1

REPORT INFORMATION
  Report Type: 
  Country: None (occurrence: None)
  Receive Date: 20100219
  Receipt Date: 20090717
  Transmission Date: 20100710
  Serious: No
  Sender: FDA-Public Use
  Company Number: US-BRISTOL-MYERS SQUIBB COMPANY-14705644

PATIENT
  Age: 3 Decade
  Sex: Female

DRUGS (2)
  1. KENALOG [Suspect]
     Indication: PAIN IN EXTREMITY
     Dosage: TRANSFORAMINAL EPIDURAL STEROID INJECTION
     Route: 008
     Dates: start: 20090605
  2. KENALOG [Suspect]
     Indication: BACK PAIN
     Dosage: TRANSFORAMINAL EPIDURAL STEROID INJECTION
     Route: 008
     Dates: start: 20090605

REACTIONS (1)
  - DIZZINESS [None]
